FAERS Safety Report 4999262-1 (Version None)
Quarter: 2006Q2

REPORT INFORMATION
  Report Type: 
  Country: None (occurrence: None)
  Receive Date: 20060509
  Receipt Date: 20060428
  Transmission Date: 20061013
  Serious: Yes (Other)
  Sender: FDA-Public Use
  Company Number: 2006057522

PATIENT

DRUGS (1)
  1. BENADRYL [Suspect]
     Indication: SOMNOLENCE
     Dosage: 5 KAPSEALS AT BEDTIME, ORAL
     Route: 048
     Dates: start: 19990101

REACTIONS (1)
  - INCORRECT DOSE ADMINISTERED [None]
